FAERS Safety Report 7057279-X (Version None)
Quarter: 2010Q4

REPORT INFORMATION
  Report Type: 
  Country: None (occurrence: None)
  Receive Date: 20101021
  Receipt Date: 20101021
  Transmission Date: 20110411
  Serious: Yes (Hospitalization)
  Sender: FDA-Public Use
  Company Number: None

PATIENT
  Sex: Male
  Weight: 13.3 kg

DRUGS (3)
  1. CYTARABINE [Suspect]
     Dosage: 3690 MG
     Dates: end: 20101018
  2. MITOXANTRONE HYDROCHLORIDE [Suspect]
     Dosage: 6.1 MG
     Dates: end: 20101017
  3. TRETINOIN [Suspect]
     Dosage: 70 MG
     Dates: end: 20101018

REACTIONS (3)
  - CHILLS [None]
  - PYREXIA [None]
  - SINUS TACHYCARDIA [None]
